FAERS Safety Report 9688743 (Version 1)
Quarter: 2013Q4

REPORT INFORMATION
  Report Type: Spontaneous
  Country: CL (occurrence: CL)
  Receive Date: 20131114
  Receipt Date: 20131114
  Transmission Date: 20140711
  Serious: Yes (Other)
  Sender: FDA-Public Use
  Company Number: CL-GLAXOSMITHKLINE-A1036329A

PATIENT
  Age: 27 Year
  Sex: Female

DRUGS (6)
  1. BENLYSTA [Suspect]
     Indication: SYSTEMIC LUPUS ERYTHEMATOSUS
     Route: 042
     Dates: start: 20130712
  2. PREGABALIN [Concomitant]
  3. AZATHIOPRINE [Concomitant]
  4. HYDROXYCHLOROQUINE [Concomitant]
  5. METHYLPREDNISOLONE [Concomitant]
  6. LEVOTHYROXINE [Concomitant]

REACTIONS (12)
  - Dizziness [Recovered/Resolved]
  - Vomiting [Recovered/Resolved]
  - Abdominal pain [Recovered/Resolved]
  - Diarrhoea [Recovered/Resolved]
  - Fatigue [Recovered/Resolved]
  - Malaise [Recovered/Resolved]
  - Anxiety [Recovered/Resolved]
  - Nausea [Recovered/Resolved]
  - Arthralgia [Recovered/Resolved]
  - Erythema [Recovered/Resolved]
  - Thyroid neoplasm [Not Recovered/Not Resolved]
  - Thyroid cyst [Not Recovered/Not Resolved]
